FAERS Safety Report 24888667 (Version 1)
Quarter: 2025Q1

REPORT INFORMATION
  Report Type: Spontaneous
  Country: US (occurrence: US)
  Receive Date: 20250127
  Receipt Date: 20250127
  Transmission Date: 20250408
  Serious: No
  Sender: STRIDES
  Company Number: US-STRIDES ARCOLAB LIMITED-2024SP003679

PATIENT
  Age: 12 Year
  Sex: Male

DRUGS (3)
  1. CHOLECALCIFEROL [Suspect]
     Active Substance: CHOLECALCIFEROL
     Indication: Epiphysiolysis
     Route: 065
  2. CALCITRIOL [Suspect]
     Active Substance: CALCITRIOL
     Indication: Hungry bone syndrome
     Route: 065
  3. CALCIUM [Concomitant]
     Active Substance: CALCIUM
     Indication: Hungry bone syndrome
     Route: 065

REACTIONS (3)
  - Nausea [Unknown]
  - Drug intolerance [Unknown]
  - Off label use [Unknown]
